FAERS Safety Report 13559547 (Version 2)
Quarter: 2017Q2

REPORT INFORMATION
  Report Type: Spontaneous
  Country: US (occurrence: US)
  Receive Date: 20170518
  Receipt Date: 20170531
  Transmission Date: 20170830
  Serious: No
  Sender: FDA-Public Use
  Company Number: US-BAYER-2017-094202

PATIENT
  Age: 37 Year
  Sex: Female

DRUGS (1)
  1. MIRENA [Suspect]
     Active Substance: LEVONORGESTREL
     Indication: PREGNANCY
     Dosage: 20 MCG/24HR, CONT
     Route: 015
     Dates: start: 20161219, end: 20170516

REACTIONS (5)
  - Pelvic pain [Recovering/Resolving]
  - Vomiting [None]
  - Anxiety [Unknown]
  - Presyncope [None]
  - Dizziness [Not Recovered/Not Resolved]

NARRATIVE: CASE EVENT DATE: 201702
